FAERS Safety Report 7713427-7 (Version None)
Quarter: 2011Q3

REPORT INFORMATION
  Report Type: 
  Country: None (occurrence: None)
  Receive Date: 20110826
  Receipt Date: 20110816
  Transmission Date: 20111222
  Serious: Yes (Hospitalization)
  Sender: FDA-Public Use
  Company Number: US-JNJFOC-20110808140

PATIENT
  Age: 88 Year
  Sex: Female

DRUGS (4)
  1. ACETAMINOPHEN [Suspect]
     Indication: OSTEOARTHRITIS
     Route: 065
  2. ALPRAZOLAM [Concomitant]
     Indication: ANXIETY
  3. ACETAMINOPHEN [Suspect]
     Route: 065
  4. AMLODIPINE [Concomitant]
     Indication: HYPERTENSION

REACTIONS (5)
  - TRANSAMINASES INCREASED [None]
  - DECREASED APPETITE [None]
  - ACCIDENTAL OVERDOSE [None]
  - VOMITING [None]
  - NAUSEA [None]
